FAERS Safety Report 8291816 (Version 3)
Quarter: 2012Q4

REPORT INFORMATION
  Report Type: 
  Country: US (occurrence: US)
  Receive Date: 20111214
  Receipt Date: 20120926
  Transmission Date: 20130627
  Serious: Yes (Other)
  Sender: FDA-Public Use
  Company Number: US-ASTRAZENECA-2011SE73796

PATIENT
  Age: 62 Year
  Sex: Female
  Weight: 73 kg

DRUGS (3)
  1. NEXIUM [Suspect]
     Indication: GASTROOESOPHAGEAL REFLUX DISEASE
     Dosage: ONE PER DAY
     Route: 048
     Dates: start: 2008
  2. PRILOSEC [Suspect]
     Route: 048
  3. AMLODIPINE [Suspect]
     Route: 065

REACTIONS (6)
  - Neoplasm malignant [Unknown]
  - Dyspepsia [Unknown]
  - Pain [Unknown]
  - Stomatitis [Recovered/Resolved]
  - Malaise [Unknown]
  - Drug ineffective [Unknown]
